FAERS Safety Report 10006400 (Version 1)
Quarter: 2014Q1

REPORT INFORMATION
  Report Type: Spontaneous
  Country: US (occurrence: US)
  Receive Date: 20140313
  Receipt Date: 20140313
  Transmission Date: 20141002
  Serious: Yes (Other)
  Sender: FDA-Public Use
  Company Number: US-SA-2014SA030543

PATIENT
  Sex: Female

DRUGS (1)
  1. ZOLPIDEM TARTRATE EXTENDED RELEASE - WINTHROP [Suspect]
     Route: 065

REACTIONS (1)
  - Road traffic accident [Unknown]
